FAERS Safety Report 24838542 (Version 5)
Quarter: 2025Q2

REPORT INFORMATION
  Report Type: Spontaneous
  Country: IT (occurrence: IT)
  Receive Date: 20250113
  Receipt Date: 20250604
  Transmission Date: 20250717
  Serious: Yes (Congenital Anomaly, Other)
  Sender: NOVARTIS
  Company Number: IT-002147023-NVSC2025IT000920

PATIENT
  Sex: Male

DRUGS (3)
  1. KESIMPTA [Suspect]
     Active Substance: OFATUMUMAB
     Indication: Foetal exposure during pregnancy
     Route: 064
  2. CHOLECALCIFEROL [Concomitant]
     Active Substance: CHOLECALCIFEROL
     Indication: Foetal exposure during pregnancy
     Route: 064
  3. Folina [Concomitant]
     Indication: Foetal exposure during pregnancy
     Route: 064

REACTIONS (4)
  - Patent ductus arteriosus [Recovered/Resolved]
  - Pyelocaliectasis [Unknown]
  - Aortic stenosis [Unknown]
  - Foetal exposure during pregnancy [Unknown]
